FAERS Safety Report 20317745 (Version 1)
Quarter: 2022Q1

REPORT INFORMATION
  Report Type: Spontaneous
  Country: FR (occurrence: FR)
  Receive Date: 20220110
  Receipt Date: 20220110
  Transmission Date: 20220423
  Serious: Yes (Hospitalization)
  Sender: FDA-Public Use
  Company Number: FR-MYLANLABS-2022M1001886

PATIENT
  Age: 71 Year
  Sex: Male

DRUGS (6)
  1. SOMATOSTATIN [Suspect]
     Active Substance: SOMATOSTATIN
     Indication: Lymphatic fistula
     Dosage: 300 GRAM, QD
     Route: 042
  2. SOMATOSTATIN [Suspect]
     Active Substance: SOMATOSTATIN
     Dosage: 1500 GRAM, QD
     Route: 042
  3. INSULIN GLARGINE [Suspect]
     Active Substance: INSULIN GLARGINE
     Indication: Diabetes mellitus
     Dosage: UNK
     Route: 065
  4. CALCIUM CHLORIDE\POTASSIUM CHLORIDE\SODIUM ACETATE\SODIUM CHLORIDE [Suspect]
     Active Substance: CALCIUM CHLORIDE\POTASSIUM CHLORIDE\SODIUM ACETATE\SODIUM CHLORIDE
     Indication: Lymphatic fistula
     Dosage: UNK
     Route: 051
  5. MEDIUM-CHAIN TRIGLYCERIDES [Concomitant]
     Active Substance: MEDIUM-CHAIN TRIGLYCERIDES
     Indication: Lymphatic fistula
     Dosage: NASOGASTRIC TUBE ENTERAL NUTRITION WITH MEDIUM-CHAIN TRIGLYCERIDES (MCT), THROUGH NASOGASTRIC TUBE
  6. LATANOPROST [Concomitant]
     Active Substance: LATANOPROST
     Indication: Open angle glaucoma
     Dosage: UNK
     Route: 065

REACTIONS (3)
  - Diabetes mellitus [Unknown]
  - Drug ineffective [Unknown]
  - Off label use [Unknown]
